FAERS Safety Report 15881069 (Version 1)
Quarter: 2019Q1

REPORT INFORMATION
  Report Type: Spontaneous
  Country: PL (occurrence: PL)
  Receive Date: 20190128
  Receipt Date: 20190128
  Transmission Date: 20190417
  Serious: Yes (Hospitalization)
  Sender: FDA-Public Use
  Company Number: PL-MYLANLABS-2019M1007188

PATIENT
  Age: 68 Year
  Sex: Female

DRUGS (1)
  1. PARACETAMOL/TRAMADOL [Suspect]
     Active Substance: ACETAMINOPHEN\TRAMADOL
     Indication: PRODUCT USED FOR UNKNOWN INDICATION
     Dosage: 1 DOSAGE FORM, BID, 75 MG AND 650 MG RESPECTIVELY, EVERY 12 HOURS
     Route: 048

REACTIONS (4)
  - Pain in jaw [Recovering/Resolving]
  - Cervical vertebral fracture [Recovering/Resolving]
  - Constipation [Recovering/Resolving]
  - Tissue infiltration [Recovering/Resolving]
